FAERS Safety Report 12896526 (Version 4)
Quarter: 2016Q4

REPORT INFORMATION
  Report Type: Spontaneous
  Country: JP (occurrence: JP)
  Receive Date: 20161031
  Receipt Date: 20161206
  Transmission Date: 20170207
  Serious: Yes (Other)
  Sender: FDA-Public Use
  Company Number: PHJP2016JP027847

PATIENT
  Age: 88 Year
  Sex: Female
  Weight: 44.1 kg

DRUGS (7)
  1. CELECOX [Concomitant]
     Active Substance: CELECOXIB
     Indication: BACK PAIN
     Dosage: 100 MG, BID
     Route: 048
     Dates: start: 20160106
  2. NEUPRO [Concomitant]
     Active Substance: ROTIGOTINE
     Indication: DEMENTIA ALZHEIMER^S TYPE
     Dosage: 4.5 MG, QD
     Route: 062
     Dates: start: 20160914
  3. GOREISAN [Concomitant]
     Active Substance: HERBALS
     Indication: OEDEMA
     Dosage: 2.5 MG, TID
     Route: 048
     Dates: start: 20160720
  4. ALEGYSAL [Concomitant]
     Indication: RHINITIS ALLERGIC
     Dosage: 10 MG, BID
     Route: 048
     Dates: start: 20160106, end: 20160925
  5. CABAGIN-U [Concomitant]
     Indication: GASTRITIS
     Dosage: 25 MG, BID
     Route: 048
     Dates: start: 20160106
  6. EXELON PATCH [Suspect]
     Active Substance: RIVASTIGMINE
     Indication: DEMENTIA ALZHEIMER^S TYPE
     Dosage: 1.9 MG QD (PATCH2.5 (CM2)
     Route: 062
     Dates: start: 20160831, end: 20160928
  7. ALEGYSAL [Concomitant]
     Indication: PRURITUS

REACTIONS (5)
  - Extrapyramidal disorder [Recovering/Resolving]
  - Tremor [Unknown]
  - Posture abnormal [Unknown]
  - Musculoskeletal stiffness [Recovered/Resolved]
  - Akinesia [Unknown]

NARRATIVE: CASE EVENT DATE: 20160907
